FAERS Safety Report 5380997-6 (Version None)
Quarter: 2007Q3

REPORT INFORMATION
  Report Type: 
  Country: None (occurrence: None)
  Receive Date: 20070706
  Receipt Date: 20070629
  Transmission Date: 20080115
  Serious: No
  Sender: FDA-Public Use
  Company Number: ATWYE502420APR07

PATIENT
  Sex: Female
  Weight: 65 kg

DRUGS (5)
  1. ENBREL [Suspect]
     Indication: POLYARTHRITIS
     Route: 058
     Dates: start: 20070301, end: 20070515
  2. ELOCON [Concomitant]
  3. SYMBICORT [Concomitant]
  4. IBUPROFEN [Suspect]
  5. PROXEN [Concomitant]

REACTIONS (4)
  - HAEMORRHAGIC DIATHESIS [None]
  - INJECTION SITE OEDEMA [None]
  - INJECTION SITE PRURITUS [None]
  - SKIN FISSURES [None]
